FAERS Safety Report 8516572-1 (Version None)
Quarter: 2012Q3

REPORT INFORMATION
  Report Type: 
  Country: None (occurrence: None)
  Receive Date: 20120711
  Receipt Date: 20120711
  Transmission Date: 20120928
  Serious: No
  Sender: FDA-Public Use
  Company Number: None

PATIENT
  Age: 70 Year
  Sex: Female
  Weight: 61.2356 kg

DRUGS (1)
  1. RESTASIS OPHTHALMIC 0.05% ALLERGAN [Suspect]
     Indication: DRY EYE
     Dosage: ONE DROP TWICE A DAY INTRAOCULAR
     Route: 031

REACTIONS (1)
  - DRUG PRESCRIBING ERROR [None]
